FAERS Safety Report 20994207 (Version 1)
Quarter: 2022Q2

REPORT INFORMATION
  Report Type: Spontaneous
  Country: IT (occurrence: IT)
  Receive Date: 20220622
  Receipt Date: 20220622
  Transmission Date: 20220721
  Serious: Yes (Other)
  Sender: FDA-Public Use
  Company Number: None

PATIENT
  Age: 15 Day
  Sex: Male
  Weight: 2.5 kg

DRUGS (10)
  1. VANCOMYCIN [Suspect]
     Active Substance: VANCOMYCIN
     Indication: Sepsis neonatal
     Dosage: 26 MILLIGRAM, Q8H (26 MG, THREE TIMES DAILY)
     Route: 042
     Dates: start: 20220321, end: 20220327
  2. AVIBACTAM SODIUM\CEFTAZIDIME [Suspect]
     Active Substance: AVIBACTAM SODIUM\CEFTAZIDIME
     Indication: Sepsis neonatal
     Dosage: [CEFTAZIDIME 52 MG]/[AVIBACTAM 13 MG], THREE TIMES DAILY
     Route: 042
     Dates: start: 20220321, end: 20220327
  3. DIAZOXIDE [Concomitant]
     Active Substance: DIAZOXIDE
     Indication: Product used for unknown indication
     Dosage: UNK
     Dates: start: 20220310
  4. AMIKACIN [Concomitant]
     Active Substance: AMIKACIN
     Indication: Product used for unknown indication
     Dosage: UNK
     Dates: start: 20220321, end: 20220322
  5. ETHACRYNIC ACID [Concomitant]
     Active Substance: ETHACRYNIC ACID
     Indication: Product used for unknown indication
     Dosage: UNK
     Dates: start: 20220322, end: 20220323
  6. GLUCAGONE [Concomitant]
     Indication: Product used for unknown indication
     Dosage: UNK
     Dates: start: 20220310, end: 20220316
  7. FUROSEMIDE [Concomitant]
     Active Substance: FUROSEMIDE
     Indication: Product used for unknown indication
     Dosage: UNK
     Dates: start: 20220314, end: 20220314
  8. DOPAMINE [Concomitant]
     Active Substance: DOPAMINE HYDROCHLORIDE
     Indication: Product used for unknown indication
     Dosage: UNK
     Dates: start: 20220322, end: 20220323
  9. AMPICILLIN [Concomitant]
     Active Substance: AMPICILLIN
     Indication: Product used for unknown indication
     Dosage: UNK
     Dates: start: 20220316, end: 20220317
  10. NETILMICIN [Concomitant]
     Active Substance: NETILMICIN
     Indication: Product used for unknown indication
     Dosage: UNK
     Dates: start: 20220316, end: 20220317

REACTIONS (3)
  - Oliguria [Recovered/Resolved]
  - Acute respiratory failure [Recovered/Resolved]
  - Neutropenia [Recovered/Resolved]

NARRATIVE: CASE EVENT DATE: 20220322
